FAERS Safety Report 19587727 (Version 1)
Quarter: 2021Q3

REPORT INFORMATION
  Report Type: Spontaneous
  Country: DE (occurrence: DE)
  Receive Date: 20210721
  Receipt Date: 20210721
  Transmission Date: 20211014
  Serious: Yes (Life-Threatening, Hospitalization, Other)
  Sender: FDA-Public Use
  Company Number: DE-MYLANLABS-2021M1043637

PATIENT
  Age: 15 Year
  Sex: Female
  Weight: 72 kg

DRUGS (2)
  1. ANGILETTA [Concomitant]
     Indication: ORAL CONTRACEPTION
     Dosage: DAILY DOSE: 1 DF DOSAGE FORM EVERY DAYS
     Route: 048
  2. PARACETAMOL [Suspect]
     Active Substance: ACETAMINOPHEN
     Indication: PRODUCT USED FOR UNKNOWN INDICATION
     Dosage: DAILY DOSE: 19 DF DOSAGE FORM EVERY DAYS
     Route: 048
     Dates: start: 20191001, end: 20191001

REACTIONS (3)
  - Toxicity to various agents [Unknown]
  - Intentional overdose [Unknown]
  - Suicidal ideation [Unknown]

NARRATIVE: CASE EVENT DATE: 20191001
